FAERS Safety Report 6577164-7 (Version None)
Quarter: 2010Q1

REPORT INFORMATION
  Report Type: 
  Country: None (occurrence: None)
  Receive Date: 20100210
  Receipt Date: 20100128
  Transmission Date: 20100710
  Serious: Yes (Hospitalization)
  Sender: FDA-Public Use
  Company Number: PHHY2010CA04976

PATIENT
  Sex: Male

DRUGS (6)
  1. EXJADE [Suspect]
     Indication: HEREDITARY STOMATOCYTOSIS
     Dosage: 3500 MG, QD
     Route: 048
  2. FOLIC ACID [Concomitant]
     Dosage: 10 MG, QD
  3. FLUOXETINE [Concomitant]
     Dosage: 40 MG, QD
  4. COUMADIN [Concomitant]
     Dosage: 7 MG, QD
  5. DILANDID [Concomitant]
     Dosage: 8-16 MG PRN
  6. KADIAN [Concomitant]
     Dosage: 200 MG, UNK

REACTIONS (2)
  - INFLUENZA LIKE ILLNESS [None]
  - PULMONARY INFARCTION [None]
